FAERS Safety Report 4555610-8 (Version None)
Quarter: 2005Q1

REPORT INFORMATION
  Report Type: 
  Country: None (occurrence: None)
  Receive Date: 20050118
  Receipt Date: 20050103
  Transmission Date: 20050727
  Serious: Yes (Death, Hospitalization)
  Sender: FDA-Public Use
  Company Number: GXKR2005IT00443

PATIENT
  Age: 70 Year
  Sex: Male

DRUGS (4)
  1. CIPROFLOXACIN [Suspect]
     Indication: PNEUMONIA
  2. RIFAMPICIN [Suspect]
     Indication: PNEUMONIA LEGIONELLA
  3. CLARITHROMYCIN [Suspect]
     Indication: PNEUMONIA LEGIONELLA
  4. GENTAMICIN [Suspect]
     Indication: PNEUMONIA

REACTIONS (4)
  - MEDICAL DEVICE COMPLICATION [None]
  - PNEUMONIA [None]
  - PSEUDOMONAS INFECTION [None]
  - SEPTIC SHOCK [None]
